FAERS Safety Report 20180861 (Version 2)
Quarter: 2022Q3

REPORT INFORMATION
  Report Type: Spontaneous
  Country: KR (occurrence: KR)
  Receive Date: 20211214
  Receipt Date: 20220805
  Transmission Date: 20221027
  Serious: Yes (Other)
  Sender: FDA-Public Use
  Company Number: KR-GLAXOSMITHKLINE-KR2021GSK247965

PATIENT
  Age: 52 Year
  Sex: Male

DRUGS (9)
  1. ROPINIROLE [Suspect]
     Active Substance: ROPINIROLE
     Indication: Parkinson^s disease
     Dosage: UNK
  2. EPROSARTAN [Suspect]
     Active Substance: EPROSARTAN
     Indication: Parkinson^s disease
     Dosage: UNK
  3. BENSERAZIDE [Suspect]
     Active Substance: BENSERAZIDE
     Indication: Parkinson^s disease
     Dosage: UNK
  4. LEVODOPA [Suspect]
     Active Substance: LEVODOPA
     Indication: Parkinson^s disease
     Dosage: UNK
  5. SELEGILINE [Suspect]
     Active Substance: SELEGILINE
     Indication: Parkinson^s disease
     Dosage: UNK
  6. AMANTADINE [Suspect]
     Active Substance: AMANTADINE
     Indication: Parkinson^s disease
     Dosage: UNK
  7. QUETIAPINE [Suspect]
     Active Substance: QUETIAPINE
     Indication: Parkinson^s disease
     Dosage: UNK
  8. TOFISOPAM [Suspect]
     Active Substance: TOFISOPAM
     Indication: Parkinson^s disease
     Dosage: UNK
  9. ENTACAPONE [Suspect]
     Active Substance: ENTACAPONE
     Indication: Parkinson^s disease
     Dosage: UNK

REACTIONS (3)
  - Toxicity to various agents [Unknown]
  - Abnormal behaviour [Unknown]
  - Hallucination [Unknown]
